FAERS Safety Report 4905370-3 (Version None)
Quarter: 2006Q1

REPORT INFORMATION
  Report Type: 
  Country: None (occurrence: None)
  Receive Date: 20060207
  Receipt Date: 20060207
  Transmission Date: 20060701
  Serious: Yes (Death)
  Sender: FDA-Public Use
  Company Number: None

PATIENT
  Sex: Female

DRUGS (2)
  1. LIPITOR [Suspect]
  2. LESCOL [Suspect]

REACTIONS (5)
  - CARDIAC OPERATION [None]
  - PROCEDURAL COMPLICATION [None]
  - RENAL FAILURE [None]
  - RHABDOMYOLYSIS [None]
  - WHEELCHAIR USER [None]
